FAERS Safety Report 18767970 (Version 4)
Quarter: 2021Q1

REPORT INFORMATION
  Report Type: Spontaneous
  Country: US (occurrence: US)
  Receive Date: 20210121
  Receipt Date: 20210308
  Transmission Date: 20210419
  Serious: Yes (Life-Threatening)
  Sender: FDA-Public Use
  Company Number: US-PFIZER INC-2021035117

PATIENT
  Age: 42 Year
  Sex: Female

DRUGS (2)
  1. EPIPEN [Suspect]
     Active Substance: EPINEPHRINE
     Indication: HYPERSENSITIVITY
     Dosage: UNK
     Route: 065
     Dates: start: 20210114, end: 20210114
  2. ALBUTEROL [SALBUTAMOL] [Suspect]
     Active Substance: ALBUTEROL
     Indication: HYPERSENSITIVITY
     Dosage: UNK
     Dates: start: 20210114

REACTIONS (1)
  - Drug ineffective [Unknown]

NARRATIVE: CASE EVENT DATE: 20210114
